FAERS Safety Report 7443005-9 (Version None)
Quarter: 2011Q2

REPORT INFORMATION
  Report Type: 
  Country: None (occurrence: None)
  Receive Date: 20110428
  Receipt Date: 20110420
  Transmission Date: 20111010
  Serious: Yes (Other)
  Sender: FDA-Public Use
  Company Number: US-SHIRE-SPV1-2011-00670

PATIENT
  Sex: Male
  Weight: 72.562 kg

DRUGS (1)
  1. VPRIV [Suspect]
     Indication: GAUCHER'S DISEASE
     Dosage: UNK UNK, UNKNOWN
     Route: 041
     Dates: start: 20100101, end: 20110401

REACTIONS (2)
  - INFARCTION [None]
  - BONE PAIN [None]
